FAERS Safety Report 10674782 (Version 1)
Quarter: 2014Q4

REPORT INFORMATION
  Report Type: Spontaneous
  Country: US (occurrence: None)
  Receive Date: 20141223
  Receipt Date: 20141223
  Transmission Date: 20150529
  Serious: Yes (Hospitalization)
  Sender: FDA-Public Use
  Company Number: None

PATIENT
  Sex: Male
  Weight: 63.6 kg

DRUGS (8)
  1. DIOVAN [Concomitant]
     Active Substance: VALSARTAN
  2. METFORMIN [Concomitant]
     Active Substance: METFORMIN HYDROCHLORIDE
  3. OMEPRAZOLE. [Concomitant]
     Active Substance: OMEPRAZOLE
  4. ZOFRAN [Concomitant]
     Active Substance: ONDANSETRON HYDROCHLORIDE
  5. JANUVIRA [Concomitant]
  6. SOFOSBUVIR 400 GILEAD SCIENCES, INC. [Suspect]
     Active Substance: SOFOSBUVIR
     Indication: HEPATITIS C
     Dosage: 400  1X DAILY ORAL
     Route: 048
     Dates: start: 20140408, end: 20140701
  7. SIMEPREVIR 150 [Suspect]
     Active Substance: SIMEPREVIR
     Indication: HEPATITIS C
     Dosage: 150   1X DAILY ORAL
     Route: 048
     Dates: start: 20140408, end: 20140701
  8. PEPCID [Concomitant]
     Active Substance: FAMOTIDINE

REACTIONS (1)
  - Pneumonia [None]
